FAERS Safety Report 13963894 (Version 2)
Quarter: 2017Q4

REPORT INFORMATION
  Report Type: Spontaneous
  Country: US (occurrence: US)
  Receive Date: 20170913
  Receipt Date: 20171016
  Transmission Date: 20180320
  Serious: Yes (Hospitalization)
  Sender: FDA-Public Use
  Company Number: US-BAYER-2017-175116

PATIENT
  Age: 46 Year
  Sex: Female
  Weight: 90.7 kg

DRUGS (11)
  1. MIRENA [Suspect]
     Active Substance: LEVONORGESTREL
     Indication: MENORRHAGIA
     Dosage: 20 MCG/24HR, CONT
     Route: 015
     Dates: start: 20160226, end: 20161001
  2. PROVERA [Concomitant]
     Active Substance: MEDROXYPROGESTERONE ACETATE
     Dosage: 1 DF, BID
     Route: 048
  3. PROVERA [Concomitant]
     Active Substance: MEDROXYPROGESTERONE ACETATE
     Dosage: 1 DF, TID
     Route: 048
  4. ZOLOFT [Concomitant]
     Active Substance: SERTRALINE HYDROCHLORIDE
     Indication: DEPRESSION
  5. IRON [Concomitant]
     Active Substance: IRON
     Dosage: 325 MG, UNK
     Route: 048
  6. PROVERA [Concomitant]
     Active Substance: MEDROXYPROGESTERONE ACETATE
     Dosage: 10 MG, BID
     Route: 048
  7. DHEA [Concomitant]
     Active Substance: PRASTERONE
     Dosage: UNK
     Route: 048
  8. PROVERA [Concomitant]
     Active Substance: MEDROXYPROGESTERONE ACETATE
     Dosage: 1 DF, QD
     Route: 048
  9. LOSARTAN POTASSIUM W/HYDROCHLOROTHIAZIDE [Concomitant]
     Active Substance: HYDROCHLOROTHIAZIDE\LOSARTAN POTASSIUM
     Dosage: UNK
     Route: 048
  10. MULTIVITAMIN [Concomitant]
     Active Substance: VITAMINS
     Dosage: UNK
  11. PROVERA [Concomitant]
     Active Substance: MEDROXYPROGESTERONE ACETATE
     Dosage: 1 DF, QD
     Route: 048

REACTIONS (14)
  - Pain [None]
  - Uterine perforation [None]
  - Depression [None]
  - Post-traumatic stress disorder [Not Recovered/Not Resolved]
  - Ovarian cyst [None]
  - Ovarian cyst ruptured [None]
  - Arthritis [Not Recovered/Not Resolved]
  - Cystitis [None]
  - Fibromyalgia [Not Recovered/Not Resolved]
  - Ovarian enlargement [None]
  - Transient ischaemic attack [None]
  - Anxiety [None]
  - Automatic bladder [None]
  - Injury [Not Recovered/Not Resolved]

NARRATIVE: CASE EVENT DATE: 201608
